FAERS Safety Report 8858672 (Version 1)
Quarter: 2012Q4

REPORT INFORMATION
  Report Type: 
  Country: US (occurrence: US)
  Receive Date: 20121024
  Receipt Date: 20121024
  Transmission Date: 20130627
  Serious: Yes (Hospitalization)
  Sender: FDA-Public Use
  Company Number: US-ELI_LILLY_AND_COMPANY-US201210004439

PATIENT
  Sex: Female

DRUGS (6)
  1. HUMALOG LISPRO [Suspect]
     Indication: DIABETES MELLITUS
     Dosage: 30 u, tid
  2. HUMALOG LISPRO [Suspect]
     Dosage: UNK UNK, prn
  3. METFORMIN [Concomitant]
  4. LANTUS [Concomitant]
     Dosage: 30 u, each evening
  5. METOPROLOL/HCTZ [Concomitant]
  6. AMLODIPINE [Concomitant]

REACTIONS (1)
  - Leg amputation [Unknown]
